FAERS Safety Report 4434024-5 (Version None)
Quarter: 2004Q3

REPORT INFORMATION
  Report Type: 
  Country: None (occurrence: None)
  Receive Date: 20040825
  Receipt Date: 20040805
  Transmission Date: 20050211
  Serious: Yes (Hospitalization, Other)
  Sender: FDA-Public Use
  Company Number: GBS040514945

PATIENT
  Age: 65 Year
  Sex: Female

DRUGS (2)
  1. PERGOLIDE MESYLATE [Suspect]
     Indication: PARKINSON'S DISEASE
     Dosage: 3 MG/ 3 DAY
     Dates: start: 19991201, end: 20040501
  2. SINEMET [Concomitant]

REACTIONS (14)
  - ACTIVITIES OF DAILY LIVING IMPAIRED [None]
  - AORTIC VALVE INCOMPETENCE [None]
  - AORTIC VALVE SCLEROSIS [None]
  - CARDIAC FAILURE [None]
  - DYSPHONIA [None]
  - FIBROSIS [None]
  - HYDRONEPHROSIS [None]
  - MITRAL VALVE DISEASE [None]
  - MITRAL VALVE INCOMPETENCE [None]
  - MOVEMENT DISORDER [None]
  - PRESCRIBED OVERDOSE [None]
  - PULMONARY VALVE DISEASE [None]
  - RETROPERITONEAL FIBROSIS [None]
  - TRICUSPID VALVE INCOMPETENCE [None]
